FAERS Safety Report 8080934-X (Version None)
Quarter: 2012Q1

REPORT INFORMATION
  Report Type: 
  Country: None (occurrence: None)
  Receive Date: 20120130
  Receipt Date: 20120120
  Transmission Date: 20120608
  Serious: Yes (Hospitalization)
  Sender: FDA-Public Use
  Company Number: US-ABBOTT-12P-163-0895727-00

PATIENT
  Sex: Male
  Weight: 80.812 kg

DRUGS (3)
  1. LUPRON DEPOT [Suspect]
     Indication: PROSTATE CANCER RECURRENT
     Dates: start: 20111001
  2. ENOXAPARIN [Suspect]
     Dates: end: 20111201
  3. ENOXAPARIN [Suspect]
     Indication: DEEP VEIN THROMBOSIS
     Dosage: SOMETIMES SPLIT 40MG AM/40MG PM
     Route: 058
     Dates: start: 20110401

REACTIONS (4)
  - HAEMORRHAGE [None]
  - URINARY BLADDER HAEMORRHAGE [None]
  - URETHRAL HAEMORRHAGE [None]
  - URINARY INCONTINENCE [None]
